FAERS Safety Report 7576136-3 (Version None)
Quarter: 2011Q2

REPORT INFORMATION
  Report Type: 
  Country: None (occurrence: None)
  Receive Date: 20110628
  Receipt Date: 20110621
  Transmission Date: 20111010
  Serious: Yes (Hospitalization, Other)
  Sender: FDA-Public Use
  Company Number: US-RB-026306-11

PATIENT
  Age: 64 Year
  Sex: Female

DRUGS (1)
  1. MUCINEX [Suspect]
     Dosage: PATIENT TOOK THE PRODUCT ON 08-JUN-2011 AND 09-JUN-2011
     Route: 048

REACTIONS (1)
  - CEREBROVASCULAR ACCIDENT [None]
